FAERS Safety Report 14327208 (Version 2)
Quarter: 2024Q4

REPORT INFORMATION
  Report Type: Spontaneous
  Country: IT (occurrence: IT)
  Receive Date: 20171227
  Receipt Date: 20241223
  Transmission Date: 20250115
  Serious: Yes (Other)
  Sender: MERCK
  Company Number: IT-009507513-1712ITA012977

PATIENT

DRUGS (2)
  1. POSACONAZOLE [Interacting]
     Active Substance: POSACONAZOLE
     Route: 048
  2. VINCRISTINE [Interacting]
     Active Substance: VINCRISTINE

REACTIONS (2)
  - Ileus [Recovered/Resolved]
  - Drug interaction [Recovered/Resolved]
